FAERS Safety Report 24042005 (Version 1)
Quarter: 2024Q3

REPORT INFORMATION
  Report Type: Spontaneous
  Country: FR (occurrence: FR)
  Receive Date: 20240702
  Receipt Date: 20240702
  Transmission Date: 20241017
  Serious: Yes (Hospitalization, Other)
  Sender: MYLAN
  Company Number: None

PATIENT
  Age: 23 Year
  Sex: Female

DRUGS (1)
  1. TRAMADOL [Suspect]
     Active Substance: TRAMADOL\TRAMADOL HYDROCHLORIDE
     Indication: Product used for unknown indication
     Dosage: UNK, QD (UP TO 1200 MG/D)
     Route: 048
     Dates: start: 2022

REACTIONS (2)
  - Drug use disorder [Unknown]
  - Epilepsy [Recovered/Resolved]

NARRATIVE: CASE EVENT DATE: 20220101
